FAERS Safety Report 7686782 (Version 9)
Quarter: 2013Q1

REPORT INFORMATION
  Report Type: Spontaneous
  Country: JP (occurrence: JP)
  Receive Date: 20101130
  Receipt Date: 20130219
  Transmission Date: 20140127
  Serious: Yes (Hospitalization, Disabling, Other)
  Sender: FDA-Public Use
  Company Number: PHHY2010JP58684

PATIENT
  Age: 74 Year
  Sex: Male
  Weight: 72 kg

DRUGS (24)
  1. AFINITOR [Suspect]
     Indication: METASTATIC RENAL CELL CARCINOMA
     Dosage: 10 MG, DAILY
     Route: 048
     Dates: start: 20100524, end: 20100712
  2. AFINITOR [Suspect]
     Dosage: 5 MG, DAILY
     Route: 048
     Dates: start: 20100721, end: 20100815
  3. AFINITOR [Suspect]
     Dosage: 2.5 MG, DAILY
     Route: 048
     Dates: start: 20100816, end: 20100818
  4. AFINITOR [Suspect]
     Dosage: 10 MG, DAILY
     Route: 048
     Dates: start: 20101004
  5. INTERFERON ALFA [Concomitant]
     Indication: METASTATIC RENAL CELL CARCINOMA
     Dosage: 5000000 DF, UNK
     Dates: start: 20090105, end: 20090615
  6. TECELEUKIN [Concomitant]
     Indication: METASTATIC RENAL CELL CARCINOMA
     Dosage: 700000 DF, UNK
     Dates: start: 20090217, end: 20090615
  7. SORAFENIB TOSILATE [Concomitant]
     Indication: METASTATIC RENAL CELL CARCINOMA
     Dosage: 800 MG
     Route: 048
     Dates: start: 20090619, end: 20100523
  8. ACTOS [Concomitant]
     Dosage: 15 MG, UNK
     Route: 048
  9. TOWARAT [Concomitant]
     Dosage: 20 MG
     Route: 048
  10. MITIGLINIDE [Concomitant]
     Dosage: UNK
     Route: 048
  11. GLIMICRON [Concomitant]
     Dosage: 40 MG
     Route: 048
  12. OLMETEC [Concomitant]
     Dosage: 40 MG
     Route: 048
  13. TRANSAMIN [Concomitant]
     Dosage: 500 MG
     Route: 048
     Dates: start: 20100604, end: 20100620
  14. CELTECT [Concomitant]
     Indication: ECZEMA
     Dosage: 60 MG
     Route: 048
     Dates: start: 20100604, end: 20100620
  15. CELTECT [Concomitant]
     Dosage: 60 MG, DAILY
     Dates: start: 20100726, end: 20100830
  16. PROPADERM [Concomitant]
     Dosage: UNK
  17. GLYMESASON [Concomitant]
     Dosage: UNK
  18. NOVORAPID [Concomitant]
     Indication: BLOOD GLUCOSE INCREASED
     Dosage: 18 UNITS DAILY
     Route: 058
     Dates: start: 20100706
  19. PREDONINE [Concomitant]
     Indication: METASTATIC RENAL CELL CARCINOMA
     Dosage: 10 MG, UNK
     Route: 048
     Dates: start: 20100927
  20. PREDONINE [Concomitant]
     Dosage: 5 MG, UNK
     Route: 048
     Dates: start: 20110117
  21. PREDONINE [Concomitant]
     Dosage: 4 MG, UNK
     Route: 048
     Dates: start: 20110328
  22. PREDONINE [Concomitant]
     Dosage: 3 MG, UNK
     Dates: start: 20110421
  23. PREDONINE [Concomitant]
     Dosage: 2 MG, UNK
     Dates: start: 20110629
  24. LANTUS [Concomitant]
     Indication: BLOOD GLUCOSE INCREASED
     Dosage: 14 UNTIS DAILY
     Dates: start: 20100706

REACTIONS (6)
  - Diabetes mellitus [Not Recovered/Not Resolved]
  - Metabolic disorder [Unknown]
  - Glycosylated haemoglobin increased [Unknown]
  - Condition aggravated [Unknown]
  - Eczema [Recovering/Resolving]
  - Rash [Unknown]
